FAERS Safety Report 23434701 (Version 1)
Quarter: 2024Q1

REPORT INFORMATION
  Report Type: Spontaneous
  Country: RU (occurrence: RU)
  Receive Date: 20240123
  Receipt Date: 20240123
  Transmission Date: 20240410
  Serious: Yes (Life-Threatening, Other)
  Sender: FDA-Public Use
  Company Number: RU-ANIPHARMA-2024-RU-000001

PATIENT
  Sex: Female

DRUGS (9)
  1. ANASTROZOLE [Suspect]
     Active Substance: ANASTROZOLE
     Indication: Breast cancer
     Dosage: 1 MG DAILY
     Route: 048
     Dates: end: 202009
  2. GOSERELIN [Suspect]
     Active Substance: GOSERELIN
     Indication: Breast cancer
     Dosage: 3.6 MG DAILY
     Route: 058
     Dates: start: 201905, end: 201908
  3. FULVESTRANT [Suspect]
     Active Substance: FULVESTRANT
     Indication: Breast cancer
     Route: 030
     Dates: start: 202011, end: 202103
  4. PALBOCICLIB [Suspect]
     Active Substance: PALBOCICLIB
     Indication: Breast cancer
     Route: 048
     Dates: start: 202011, end: 202103
  5. EVEROLIMUS [Suspect]
     Active Substance: EVEROLIMUS
     Indication: Breast cancer
     Route: 065
     Dates: start: 202104, end: 202105
  6. TAMOXIFEN [Suspect]
     Active Substance: TAMOXIFEN
     Indication: Breast cancer
     Dosage: 20 MG DAILY
     Route: 048
     Dates: start: 201905, end: 201908
  7. CYCLOPHOSPHAMIDE\DOXORUBICIN [Suspect]
     Active Substance: CYCLOPHOSPHAMIDE\DOXORUBICIN
     Indication: Breast cancer
     Route: 065
  8. EXEMESTANE [Suspect]
     Active Substance: EXEMESTANE
     Indication: Breast cancer
     Dosage: 25 MG DAILY
     Route: 065
     Dates: start: 202104, end: 202105
  9. PACLITAXEL [Suspect]
     Active Substance: PACLITAXEL
     Indication: Breast cancer
     Route: 065

REACTIONS (4)
  - Malignant neoplasm progression [Unknown]
  - Pleurisy [Unknown]
  - Respiratory failure [Unknown]
  - Metastases to lung [Unknown]
